FAERS Safety Report 5304532-3 (Version None)
Quarter: 2007Q2

REPORT INFORMATION
  Report Type: 
  Country: None (occurrence: None)
  Receive Date: 20070417
  Receipt Date: 20070417
  Transmission Date: 20071010
  Serious: Yes (Hospitalization)
  Sender: FDA-Public Use
  Company Number: None

PATIENT
  Age: 51 Year
  Sex: Male

DRUGS (4)
  1. BEVACIZUMAB [Suspect]
     Indication: RECTAL CANCER
     Dates: start: 20061114, end: 20070117
  2. OXALIPLATIN [Suspect]
     Indication: RECTAL CANCER
     Dates: start: 20061114, end: 20070124
  3. LEUCOVORIN CALCIUM [Suspect]
     Indication: RECTAL CANCER
     Dates: start: 20061114, end: 20070117
  4. FLUOROURACIL [Suspect]
     Indication: RECTAL CANCER
     Dates: start: 20061114, end: 20070130

REACTIONS (4)
  - ANASTOMOTIC LEAK [None]
  - COMPUTERISED TOMOGRAM ABDOMEN ABNORMAL [None]
  - ELECTROCARDIOGRAM ABNORMAL [None]
  - HEPATIC CYST [None]
